FAERS Safety Report 7032388-X (Version None)
Quarter: 2010Q4

REPORT INFORMATION
  Report Type: 
  Country: None (occurrence: None)
  Receive Date: 20101007
  Receipt Date: 20101004
  Transmission Date: 20110411
  Serious: Yes (Hospitalization)
  Sender: FDA-Public Use
  Company Number: DE-PURDUE-DEU_2009_0005197

PATIENT
  Age: 77 Year
  Sex: Male
  Weight: 70 kg

DRUGS (7)
  1. MST 30 MG MUNDIPHARMA [Suspect]
     Indication: PAIN
     Dosage: 30 MG, BID
     Route: 048
     Dates: start: 20080715, end: 20080718
  2. NEURONTIN [Suspect]
     Indication: PAIN
     Dosage: 300 MG, TID
     Route: 048
     Dates: start: 20030401
  3. ACETYLSALICYLIC ACID SRT [Concomitant]
  4. ALLOPURINOL [Concomitant]
  5. AMLODIPINE [Concomitant]
  6. PANTOZOL                           /01263202/ [Concomitant]
  7. PREDNISOLON                        /00016201/ [Concomitant]

REACTIONS (2)
  - DISTURBANCE IN ATTENTION [None]
  - FALL [None]
